FAERS Safety Report 14046265 (Version 1)
Quarter: 2017Q4

REPORT INFORMATION
  Report Type: Spontaneous
  Country: US (occurrence: US)
  Receive Date: 20171005
  Receipt Date: 20171005
  Transmission Date: 20180321
  Serious: No
  Sender: FDA-Public Use
  Company Number: US-INDIVIOR LIMITED-INDV-100031-2017

PATIENT
  Sex: Female

DRUGS (1)
  1. BUPRENORPHINE. [Suspect]
     Active Substance: BUPRENORPHINE
     Indication: PRODUCT USED FOR UNKNOWN INDICATION
     Dosage: 2MG, UNK
     Route: 065
     Dates: start: 2016

REACTIONS (3)
  - Road traffic accident [Recovered/Resolved]
  - Dysarthria [Unknown]
  - Feeling drunk [Unknown]

NARRATIVE: CASE EVENT DATE: 201703
